FAERS Safety Report 14922006 (Version 1)
Quarter: 2018Q2

REPORT INFORMATION
  Report Type: Spontaneous
  Country: FR (occurrence: FR)
  Receive Date: 20180522
  Receipt Date: 20180522
  Transmission Date: 20180711
  Serious: Yes (Hospitalization)
  Sender: FDA-Public Use
  Company Number: FR-SUN PHARMACEUTICAL INDUSTRIES LTD-2018RR-173404

PATIENT
  Age: 76 Year
  Sex: Male

DRUGS (2)
  1. CIPROFLOXACIN. [Suspect]
     Active Substance: CIPROFLOXACIN
     Indication: PROSTATITIS ESCHERICHIA COLI
     Dosage: 1000 MG, UNK
     Route: 048
     Dates: start: 20160618, end: 20160627
  2. BACTRIM [Suspect]
     Active Substance: SULFAMETHOXAZOLE\TRIMETHOPRIM
     Indication: PROSTATITIS ESCHERICHIA COLI
     Dosage: ()
     Route: 048
     Dates: start: 20160613, end: 20160618

REACTIONS (2)
  - Pruritus [Unknown]
  - Renal failure [Unknown]

NARRATIVE: CASE EVENT DATE: 20160618
